FAERS Safety Report 12393810 (Version 1)
Quarter: 2016Q2

REPORT INFORMATION
  Report Type: Spontaneous
  Country: KR (occurrence: KR)
  Receive Date: 20160523
  Receipt Date: 20160523
  Transmission Date: 20160815
  Serious: Yes (Hospitalization)
  Sender: FDA-Public Use
  Company Number: PHHY2016KR060427

PATIENT
  Age: 61 Year
  Sex: Female

DRUGS (9)
  1. ORFIL [Concomitant]
     Active Substance: VALPROATE SODIUM
     Dosage: 300-450 MG, BID
     Route: 065
  2. AFINITOR [Suspect]
     Active Substance: EVEROLIMUS
     Indication: BRAIN NEOPLASM
  3. AROMASIN [Concomitant]
     Active Substance: EXEMESTANE
     Indication: PRODUCT USED FOR UNKNOWN INDICATION
     Dosage: 25 MG, QD
     Route: 048
     Dates: end: 20131101
  4. HARDCAL [Concomitant]
     Indication: PRODUCT USED FOR UNKNOWN INDICATION
     Dosage: 1 DF, QD
     Route: 048
  5. FARESTON [Concomitant]
     Active Substance: TOREMIFENE CITRATE
     Indication: PRODUCT USED FOR UNKNOWN INDICATION
     Route: 065
  6. AFINITOR [Suspect]
     Active Substance: EVEROLIMUS
     Indication: BREAST CANCER
     Dosage: 5 MG, QD(SPLIT IN HALF OF 10 MG)
     Route: 048
     Dates: start: 201309, end: 20131101
  7. ORFIL [Concomitant]
     Active Substance: VALPROATE SODIUM
     Indication: PRODUCT USED FOR UNKNOWN INDICATION
     Dosage: 1 DF, BID
     Route: 048
  8. DEXAMETHASON//DEXAMETHASONE [Concomitant]
     Active Substance: DEXAMETHASONE
     Indication: PRODUCT USED FOR UNKNOWN INDICATION
     Dosage: 1 MG, QD
     Route: 048
  9. DEXAMETHASON//DEXAMETHASONE [Concomitant]
     Active Substance: DEXAMETHASONE
     Dosage: 2 MG, BID
     Route: 065

REACTIONS (13)
  - Abnormal behaviour [Unknown]
  - Pyrexia [Unknown]
  - Syncope [Unknown]
  - Foaming at mouth [Unknown]
  - Dyskinesia [Unknown]
  - Headache [Unknown]
  - Immunodeficiency [Not Recovered/Not Resolved]
  - Seizure [Unknown]
  - Insomnia [Unknown]
  - Fatigue [Unknown]
  - Epilepsy [Recovered/Resolved]
  - Dizziness [Unknown]
  - Wrong technique in product usage process [Unknown]

NARRATIVE: CASE EVENT DATE: 201309
